FAERS Safety Report 24677486 (Version 2)
Quarter: 2025Q1

REPORT INFORMATION
  Report Type: Spontaneous
  Country: US (occurrence: US)
  Receive Date: 20241129
  Receipt Date: 20250120
  Transmission Date: 20250409
  Serious: No
  Sender: SANOFI AVENTIS
  Company Number: US-SA-2024SA347859

PATIENT
  Sex: Female

DRUGS (1)
  1. DUPIXENT [Suspect]
     Active Substance: DUPILUMAB
     Indication: Nasal polyps
     Dosage: 300 MG, QOW
     Route: 058

REACTIONS (7)
  - Eye discharge [Unknown]
  - Arthritis [Unknown]
  - Vision blurred [Unknown]
  - Condition aggravated [Unknown]
  - Eye pruritus [Unknown]
  - Arthralgia [Recovered/Resolved]
  - Therapeutic response unexpected [Unknown]
